FAERS Safety Report 7285513-X (Version None)
Quarter: 2011Q1

REPORT INFORMATION
  Report Type: 
  Country: None (occurrence: None)
  Receive Date: 20110121
  Receipt Date: 20070322
  Transmission Date: 20110831
  Serious: No
  Sender: FDA-Public Use
  Company Number: 110

PATIENT
  Sex: Male

DRUGS (1)
  1. FAZACLO ODT [Suspect]
     Indication: SCHIZOPHRENIA
     Dosage: 300 MG PO DAILY
     Route: 048
     Dates: start: 20050804, end: 20070226

REACTIONS (1)
  - THROMBOCYTOPENIA [None]
